FAERS Safety Report 11176380 (Version 1)
Quarter: 2015Q2

REPORT INFORMATION
  Report Type: Spontaneous
  Country: FR (occurrence: FR)
  Receive Date: 20150610
  Receipt Date: 20150610
  Transmission Date: 20150821
  Serious: Yes (Other)
  Sender: FDA-Public Use
  Company Number: FR-009507513-1506FRA003592

PATIENT
  Age: 67 Year
  Sex: Male

DRUGS (15)
  1. LASILIX [Concomitant]
     Active Substance: FUROSEMIDE
     Dosage: UNK
     Dates: end: 20150430
  2. INIPOMP [Concomitant]
     Active Substance: PANTOPRAZOLE SODIUM
  3. LERCAN [Concomitant]
     Active Substance: LERCANIDIPINE
  4. FLECAINE [Concomitant]
     Active Substance: FLECAINIDE
  5. BACTRIM [Suspect]
     Active Substance: SULFAMETHOXAZOLE\TRIMETHOPRIM
     Dosage: UNK
     Route: 065
     Dates: start: 20150409, end: 20150508
  6. PANTOPRAZOLE [Suspect]
     Active Substance: PANTOPRAZOLE SODIUM
     Dosage: UNK
     Route: 048
     Dates: end: 20150505
  7. ACETAMINOPHEN. [Suspect]
     Active Substance: ACETAMINOPHEN
     Dosage: UNK
     Route: 048
     Dates: end: 20150506
  8. CREON [Concomitant]
     Active Substance: PANCRELIPASE AMYLASE\PANCRELIPASE LIPASE\PANCRELIPASE PROTEASE
  9. TEMODAL [Suspect]
     Active Substance: TEMOZOLOMIDE
     Dosage: UNK
     Route: 065
     Dates: start: 20150409, end: 20150430
  10. COUMADIN [Concomitant]
     Active Substance: WARFARIN SODIUM
     Dosage: UNK
     Dates: start: 201503
  11. LASILIX [Concomitant]
     Active Substance: FUROSEMIDE
     Dosage: UNK
     Dates: start: 20150507
  12. EUPRESSYL [Concomitant]
     Active Substance: URAPIDIL
  13. ONBREZ [Concomitant]
     Active Substance: INDACATEROL
  14. ALLOPURINOL. [Concomitant]
     Active Substance: ALLOPURINOL
  15. SPIRIVA [Concomitant]
     Active Substance: TIOTROPIUM BROMIDE MONOHYDRATE
     Route: 055

REACTIONS (1)
  - Mixed liver injury [Recovering/Resolving]

NARRATIVE: CASE EVENT DATE: 201504
